FAERS Safety Report 9513465 (Version 1)
Quarter: 2013Q3

REPORT INFORMATION
  Report Type: Spontaneous
  Country: US (occurrence: US)
  Receive Date: 20130910
  Receipt Date: 20130910
  Transmission Date: 20140515
  Serious: No
  Sender: FDA-Public Use
  Company Number: US-TARO-2013P1003416

PATIENT
  Age: 48 Year
  Sex: Male
  Weight: 136.08 kg

DRUGS (18)
  1. WARFARIN SODIUM TABLETS USP 1MG [Suspect]
     Route: 048
     Dates: start: 20120831, end: 20120903
  2. WARFARIN SODIUM TABLETS USP 1MG [Suspect]
     Route: 048
     Dates: start: 20120904, end: 20120906
  3. WARFARIN SODIUM TABLETS USP 1MG [Suspect]
     Route: 048
     Dates: start: 20120908, end: 20120911
  4. WARFARIN SODIUM TABLETS USP 1MG [Suspect]
     Route: 048
     Dates: start: 20120912, end: 20120918
  5. WARFARIN SODIUM TABLETS USP 1MG [Suspect]
     Route: 048
     Dates: start: 20120912, end: 20120918
  6. WARFARIN SODIUM TABLETS USP 1MG [Suspect]
     Route: 048
     Dates: start: 20120919, end: 20120924
  7. WARFARIN SODIUM TABLETS USP 1MG [Suspect]
     Route: 048
     Dates: start: 20120925, end: 20121010
  8. WARFARIN SODIUM TABLETS USP 1MG [Suspect]
     Route: 048
     Dates: start: 20121011, end: 20121022
  9. WARFARIN SODIUM TABLETS USP 1MG [Suspect]
     Route: 048
     Dates: start: 20121023, end: 20121120
  10. WARFARIN SODIUM TABLETS USP 1MG [Suspect]
     Route: 048
     Dates: start: 20121121, end: 20121219
  11. WARFARIN SODIUM TABLETS USP 1MG [Suspect]
     Route: 048
     Dates: start: 20121220, end: 20130102
  12. WARFARIN SODIUM TABLETS USP 1MG [Suspect]
     Route: 048
     Dates: start: 20121220, end: 20130102
  13. WARFARIN SODIUM TABLETS USP 1MG [Suspect]
     Route: 048
     Dates: start: 20130103, end: 20130206
  14. WARFARIN SODIUM TABLETS USP 1MG [Suspect]
     Route: 048
     Dates: start: 20130207, end: 20130220
  15. WARFARIN SODIUM TABLETS USP 1MG [Suspect]
     Route: 048
     Dates: start: 20130221
  16. WARFARIN SODIUM TABLETS USP 5MG [Suspect]
     Route: 048
     Dates: start: 20120825, end: 20120830
  17. ^A LOT OF MEDICATIONS^ [Concomitant]
  18. LOVENOX [Concomitant]
     Dates: start: 20120919, end: 20120928

REACTIONS (14)
  - International normalised ratio fluctuation [Recovered/Resolved]
  - Blood lactate dehydrogenase increased [Not Recovered/Not Resolved]
  - Road traffic accident [Recovered/Resolved]
  - Contusion [Unknown]
  - Post-traumatic neck syndrome [Unknown]
  - Influenza [Unknown]
  - Asthenia [Unknown]
  - Renal impairment [Recovering/Resolving]
  - Pain in extremity [Not Recovered/Not Resolved]
  - Muscle spasms [Not Recovered/Not Resolved]
  - Mobility decreased [Recovered/Resolved]
  - Mass [Not Recovered/Not Resolved]
  - Muscle tightness [Not Recovered/Not Resolved]
  - Glomerular filtration rate decreased [Recovering/Resolving]
